FAERS Safety Report 5722074-8 (Version None)
Quarter: 2008Q2

REPORT INFORMATION
  Report Type: 
  Country: None (occurrence: None)
  Receive Date: 20080429
  Receipt Date: 20080417
  Transmission Date: 20081010
  Serious: Yes (Other)
  Sender: FDA-Public Use
  Company Number: GB-PFIZER INC-2008035273

PATIENT
  Age: 57 Year
  Weight: 66 kg

DRUGS (5)
  1. CHAMPIX [Suspect]
     Indication: SMOKING CESSATION THERAPY
     Route: 048
     Dates: start: 20071009, end: 20080314
  2. ACAMPROSATE [Concomitant]
     Indication: ALCOHOL ABUSE
     Route: 048
  3. DULOXETINE [Concomitant]
     Indication: DEPRESSION
     Route: 048
  4. SERETIDE [Concomitant]
     Indication: CHRONIC OBSTRUCTIVE PULMONARY DISEASE
     Route: 055
  5. TRAZODONE HCL [Concomitant]
     Indication: DEPRESSION
     Route: 048

REACTIONS (3)
  - DECREASED INTEREST [None]
  - DEPRESSION [None]
  - IRRITABILITY [None]
